FAERS Safety Report 10454275 (Version 1)
Quarter: 2014Q3

REPORT INFORMATION
  Report Type: Spontaneous
  Country: US (occurrence: US)
  Receive Date: 20140915
  Receipt Date: 20140915
  Transmission Date: 20150326
  Serious: No
  Sender: FDA-Public Use
  Company Number: PHEH2014US016703

PATIENT
  Sex: Female

DRUGS (9)
  1. VENLAFAXINE [Suspect]
     Active Substance: VENLAFAXINE HYDROCHLORIDE
     Indication: HOT FLUSH
     Dosage: 0.75 MG, UNK
     Dates: start: 20140724
  2. SYNTHROID [Concomitant]
     Active Substance: LEVOTHYROXINE SODIUM
     Dosage: 0.5 MG, PER DAY
  3. TASIGNA [Suspect]
     Active Substance: NILOTINIB
     Dosage: UNK UKN, UNK
  4. VENLAFAXINE [Suspect]
     Active Substance: VENLAFAXINE HYDROCHLORIDE
     Indication: DEPRESSION
     Dosage: 0.375 MG, UNK
     Dates: start: 20140701, end: 20140724
  5. PROBIOTIC                          /07343501/ [Concomitant]
     Dosage: UNK UKN, UNK
  6. PRILOSEC [Concomitant]
     Active Substance: OMEPRAZOLE MAGNESIUM
     Dosage: UNK UKN, UNK
  7. MELATONIN [Suspect]
     Active Substance: MELATONIN
     Dosage: UNK UKN, UNK
  8. BENADRYL [Concomitant]
     Active Substance: DIPHENHYDRAMINE HYDROCHLORIDE
     Dosage: UNK UKN, AS NEEDED
  9. PREMARIN [Suspect]
     Active Substance: ESTROGENS, CONJUGATED
     Dosage: UNK UKN, UNK

REACTIONS (2)
  - Hot flush [Unknown]
  - Gastrooesophageal reflux disease [Unknown]
